FAERS Safety Report 12315287 (Version 1)
Quarter: 2016Q2

REPORT INFORMATION
  Report Type: Spontaneous
  Country: US (occurrence: US)
  Receive Date: 20160428
  Receipt Date: 20160428
  Transmission Date: 20160815
  Serious: Yes (Other)
  Sender: FDA-Public Use
  Company Number: US-BAYER-2016-075185

PATIENT
  Age: 22 Year
  Sex: Female
  Weight: 85.71 kg

DRUGS (7)
  1. BIOTIN [Concomitant]
     Active Substance: BIOTIN
  2. BAYER LOW DOSE [Suspect]
     Active Substance: ASPIRIN
     Indication: HAEMORRHAGIC STROKE
     Dosage: 1 DF, QD
     Dates: start: 201506
  3. BAYER LOW DOSE [Suspect]
     Active Substance: ASPIRIN
     Indication: HAEMORRHAGIC STROKE
     Dosage: 1 DF, QD
     Route: 048
     Dates: start: 201506
  4. VITAMIN C [Concomitant]
     Active Substance: ASCORBIC ACID
  5. CALCIUM [Concomitant]
     Active Substance: CALCIUM
  6. BAYER GENUINE ASPIRIN [Suspect]
     Active Substance: ASPIRIN
     Indication: PYREXIA
     Dosage: 2 DF, UNK
     Route: 048
     Dates: end: 1952
  7. PENICILIN G [Suspect]
     Active Substance: PENICILLIN G

REACTIONS (2)
  - Off label use [None]
  - Angioedema [None]

NARRATIVE: CASE EVENT DATE: 1952
